FAERS Safety Report 6702214-4 (Version None)
Quarter: 2010Q2

REPORT INFORMATION
  Report Type: 
  Country: None (occurrence: None)
  Receive Date: 20100429
  Receipt Date: 20100419
  Transmission Date: 20101027
  Serious: Yes (Death)
  Sender: FDA-Public Use
  Company Number: US-PFIZER INC-2009238497

PATIENT
  Sex: Male

DRUGS (1)
  1. SUTENT [Suspect]
     Indication: RENAL CANCER
     Dosage: 50 MG, 1X/DAY, 4 WEKS ON 2 WEEKS OFF
     Route: 048
     Dates: start: 20090501

REACTIONS (3)
  - DEATH [None]
  - DYSGEUSIA [None]
  - WEIGHT DECREASED [None]
